FAERS Safety Report 5709412-7 (Version None)
Quarter: 2008Q2

REPORT INFORMATION
  Report Type: 
  Country: None (occurrence: None)
  Receive Date: 20080418
  Receipt Date: 20080416
  Transmission Date: 20081010
  Serious: Yes (Life-Threatening, Hospitalization)
  Sender: FDA-Public Use
  Company Number: FR-ASTRAZENECA-2008CG00589

PATIENT
  Age: 20750 Day
  Sex: Female

DRUGS (6)
  1. DIPRIVAN [Suspect]
     Indication: INDUCTION OF ANAESTHESIA
     Route: 042
     Dates: start: 20080321, end: 20080321
  2. DIPRIVAN [Suspect]
     Indication: HYSTEROSCOPY
     Route: 042
     Dates: start: 20080321, end: 20080321
  3. CELOCURIN [Suspect]
     Indication: INDUCTION OF ANAESTHESIA
     Route: 042
     Dates: start: 20080321, end: 20080321
  4. CELOCURIN [Suspect]
     Indication: HYSTEROSCOPY
     Route: 042
     Dates: start: 20080321, end: 20080321
  5. RAPIFEN [Suspect]
     Indication: INDUCTION OF ANAESTHESIA
     Route: 042
     Dates: start: 20080321, end: 20080321
  6. RAPIFEN [Suspect]
     Indication: HYSTEROSCOPY
     Route: 042
     Dates: start: 20080321, end: 20080321

REACTIONS (3)
  - CARDIAC ARREST [None]
  - DERMATITIS EXFOLIATIVE [None]
  - SALIVARY HYPERSECRETION [None]
